FAERS Safety Report 8316653-1 (Version None)
Quarter: 2012Q2

REPORT INFORMATION
  Report Type: 
  Country: None (occurrence: None)
  Receive Date: 20120427
  Receipt Date: 20120426
  Transmission Date: 20120825
  Serious: Yes (Death)
  Sender: FDA-Public Use
  Company Number: PHHY2012NL029879

PATIENT
  Sex: Male

DRUGS (4)
  1. ZOMETA [Suspect]
     Dosage: 4 MG,/ 100 ML ONCE IN EVERY 28 DAYS
     Route: 042
     Dates: start: 20110912
  2. ZOMETA [Suspect]
     Dosage: 4 MG,/ 100 ML ONCE IN EVERY 28 DAYS
     Route: 042
     Dates: start: 20120405
  3. ZOMETA [Suspect]
     Dosage: 4 MG,/ 100 ML ONCE IN EVERY 28 DAYS
     Route: 042
     Dates: start: 20120308
  4. ZOMETA [Suspect]
     Indication: PROSTATE CANCER METASTATIC
     Dosage: 4 MG,/ 100 ML ONCE IN EVERY 28 DAYS
     Route: 042

REACTIONS (4)
  - GAIT DISTURBANCE [None]
  - GENERAL PHYSICAL HEALTH DETERIORATION [None]
  - URINARY INCONTINENCE [None]
  - DEATH [None]
